FAERS Safety Report 24789058 (Version 1)
Quarter: 2024Q4

REPORT INFORMATION
  Report Type: Other
  Country: PT (occurrence: PT)
  Receive Date: 20241230
  Receipt Date: 20241230
  Transmission Date: 20250114
  Serious: Yes (Other)
  Sender: B BRAUN
  Company Number: PT-B.Braun Medical Inc.-2168019

PATIENT
  Age: 51 Year
  Sex: Male

DRUGS (6)
  1. METRONIDAZOLE [Suspect]
     Active Substance: METRONIDAZOLE
     Indication: Colitis ulcerative
  2. METRONIDAZOLE [Suspect]
     Active Substance: METRONIDAZOLE
     Indication: Eosinophilia
  3. CORTICOSTEROID NOS [Suspect]
     Active Substance: CORTICOSTEROID NOS
  4. CIPROFLOXACIN [Suspect]
     Active Substance: CIPROFLOXACIN
  5. PREDNISOLONE [Suspect]
     Active Substance: PREDNISOLONE
  6. GANCICLOVIR [Suspect]
     Active Substance: GANCICLOVIR

REACTIONS (1)
  - Drug ineffective [Unknown]
